FAERS Safety Report 12184507 (Version 1)
Quarter: 2016Q1

REPORT INFORMATION
  Report Type: Spontaneous
  Country: CN (occurrence: CN)
  Receive Date: 20160316
  Receipt Date: 20160316
  Transmission Date: 20160526
  Serious: Yes (Death, Other)
  Sender: FDA-Public Use
  Company Number: CN-BAYER-2016-050928

PATIENT
  Age: 81 Year
  Sex: Male

DRUGS (1)
  1. IOPROMIDE [Suspect]
     Active Substance: IOPROMIDE
     Indication: COMPUTERISED TOMOGRAM
     Dosage: 2ML/SEC 100ML
     Route: 040
     Dates: start: 20040930, end: 20040930

REACTIONS (5)
  - Cardiac arrest [Fatal]
  - Seizure [None]
  - Vomiting [None]
  - Pulse absent [None]
  - Blood pressure immeasurable [None]

NARRATIVE: CASE EVENT DATE: 20040930
